FAERS Safety Report 5492220-2 (Version None)
Quarter: 2007Q4

REPORT INFORMATION
  Report Type: 
  Country: None (occurrence: None)
  Receive Date: 20071022
  Receipt Date: 20071015
  Transmission Date: 20080405
  Serious: Yes (Life-Threatening, Disabling)
  Sender: FDA-Public Use
  Company Number: JP-ASTRAZENECA-2007AP06506

PATIENT
  Age: 51 Year
  Sex: Male

DRUGS (1)
  1. DIPRIVAN [Suspect]
     Route: 042
     Dates: start: 20040701, end: 20040701

REACTIONS (2)
  - HYPOXIC ENCEPHALOPATHY [None]
  - SHOCK [None]
